FAERS Safety Report 6842093-8 (Version None)
Quarter: 2010Q3

REPORT INFORMATION
  Report Type: 
  Country: None (occurrence: None)
  Receive Date: 20100714
  Receipt Date: 20070720
  Transmission Date: 20110219
  Serious: No
  Sender: FDA-Public Use
  Company Number: US-PFIZER INC-2007061429

PATIENT
  Sex: Female
  Weight: 72.7 kg

DRUGS (13)
  1. CHANTIX [Suspect]
     Dates: start: 20070715, end: 20070718
  2. PEPTO-BISMOL [Interacting]
     Indication: DECREASED APPETITE
     Dates: start: 20070717
  3. PEPTO-BISMOL [Interacting]
     Indication: DYSPHAGIA
  4. WARFARIN SODIUM [Concomitant]
  5. CELEBREX [Concomitant]
  6. PROTONIX [Concomitant]
  7. LIPITOR [Concomitant]
  8. CITALOPRAM HYDROBROMIDE [Concomitant]
  9. SYNTHROID [Concomitant]
  10. VITAMINS [Concomitant]
  11. LYRICA [Concomitant]
  12. FLONASE [Concomitant]
     Indication: SINUSITIS
  13. TIOTROPIUM BROMIDE [Concomitant]

REACTIONS (6)
  - DECREASED APPETITE [None]
  - DRUG INTERACTION [None]
  - DYSPEPSIA [None]
  - DYSPHAGIA [None]
  - FAECES DISCOLOURED [None]
  - HIATUS HERNIA [None]
